FAERS Safety Report 4455776-4 (Version None)
Quarter: 2004Q3

REPORT INFORMATION
  Report Type: 
  Country: None (occurrence: None)
  Receive Date: 20040920
  Receipt Date: 20040910
  Transmission Date: 20050211
  Serious: Yes (Other)
  Sender: FDA-Public Use
  Company Number: 2004-09-0869

PATIENT
  Age: 47 Year
  Sex: Female

DRUGS (4)
  1. PEG-INTRON [Suspect]
     Indication: HEPATITIS C
     Dates: start: 20031031
  2. RIBASPHERE [Suspect]
     Indication: HEPATITIS
     Dates: start: 20031031
  3. NEUPOGEN [Concomitant]
  4. PROCRIT INJECTION SOLUTION [Concomitant]

REACTIONS (5)
  - BENIGN NEOPLASM [None]
  - DYSKINESIA [None]
  - DYSPHONIA [None]
  - PHARYNGOLARYNGEAL PAIN [None]
  - VOCAL CORD PARALYSIS [None]
